FAERS Safety Report 8439457-8 (Version None)
Quarter: 2012Q2

REPORT INFORMATION
  Report Type: 
  Country: None (occurrence: None)
  Receive Date: 20120615
  Receipt Date: 20120606
  Transmission Date: 20120825
  Serious: Yes (Hospitalization)
  Sender: FDA-Public Use
  Company Number: KR-JNJFOC-20110707162

PATIENT
  Sex: Female
  Weight: 67 kg

DRUGS (6)
  1. PLACEBO [Suspect]
     Indication: SCHIZOPHRENIA
     Route: 030
     Dates: start: 20110623, end: 20110630
  2. GRANDPAZE-F [Concomitant]
     Dates: start: 20110707, end: 20110801
  3. ACETAMINOPHEN [Suspect]
     Indication: SUICIDE ATTEMPT
  4. LORIVAN [Concomitant]
     Indication: INSOMNIA
     Dates: start: 20110623, end: 20110623
  5. LORIVAN [Concomitant]
     Dates: start: 20110625, end: 20110712
  6. ACETAMINOPHEN [Suspect]

REACTIONS (1)
  - SUICIDE ATTEMPT [None]
